FAERS Safety Report 6880681-3 (Version None)
Quarter: 2010Q3

REPORT INFORMATION
  Report Type: 
  Country: None (occurrence: None)
  Receive Date: 20100728
  Receipt Date: 20100719
  Transmission Date: 20110219
  Serious: Yes (Hospitalization)
  Sender: FDA-Public Use
  Company Number: 2005BI002027

PATIENT
  Age: 67 Year
  Sex: Female

DRUGS (2)
  1. AVONEX [Suspect]
     Indication: MULTIPLE SCLEROSIS
     Route: 030
     Dates: start: 19960924
  2. AVONEX [Suspect]
     Route: 030
     Dates: end: 20051019

REACTIONS (3)
  - GAIT DISTURBANCE [None]
  - HIP ARTHROPLASTY [None]
  - MOBILITY DECREASED [None]
